FAERS Safety Report 6083088-4 (Version None)
Quarter: 2009Q1

REPORT INFORMATION
  Report Type: 
  Country: None (occurrence: None)
  Receive Date: 20090218
  Receipt Date: 20090211
  Transmission Date: 20090719
  Serious: Yes (Life-Threatening)
  Sender: FDA-Public Use
  Company Number: FR-RANBAXY-2009RR-21840

PATIENT
  Age: 28 Year
  Sex: Female

DRUGS (2)
  1. ACETAMINOPHEN [Suspect]
     Dosage: 1000 MG, UNK
     Route: 048
  2. ACETAMINOPHEN [Suspect]
     Dosage: 200 MG, UNK
     Route: 048

REACTIONS (5)
  - ANAPHYLACTIC REACTION [None]
  - CHEST DISCOMFORT [None]
  - HYPOTENSION [None]
  - LOSS OF CONSCIOUSNESS [None]
  - URTICARIA [None]
